FAERS Safety Report 7888920-7 (Version None)
Quarter: 2011Q4

REPORT INFORMATION
  Report Type: 
  Country: None (occurrence: None)
  Receive Date: 20111103
  Receipt Date: 20111011
  Transmission Date: 20120403
  Serious: Yes (Hospitalization)
  Sender: FDA-Public Use
  Company Number: CA-JNJFOC-20111012701

PATIENT
  Sex: Female
  Weight: 78 kg

DRUGS (2)
  1. REMICADE [Suspect]
     Indication: ANKYLOSING SPONDYLITIS
     Route: 042
     Dates: start: 20100803
  2. SOLU-MEDROL [Concomitant]

REACTIONS (7)
  - PHARYNGITIS STREPTOCOCCAL [None]
  - SACROILIITIS [None]
  - CROHN'S DISEASE [None]
  - CANDIDIASIS [None]
  - DEHYDRATION [None]
  - RASH [None]
  - PNEUMONIA [None]
